FAERS Safety Report 20025874 (Version 1)
Quarter: 2021Q4

REPORT INFORMATION
  Report Type: Spontaneous
  Country: NL (occurrence: NL)
  Receive Date: 20211102
  Receipt Date: 20211102
  Transmission Date: 20220303
  Serious: Yes (Death, Hospitalization)
  Sender: FDA-Public Use
  Company Number: NL-TEVA-2021-NL-1971173

PATIENT
  Age: 64 Year
  Sex: Male
  Weight: 90 kg

DRUGS (19)
  1. METFORMIN [Suspect]
     Active Substance: METFORMIN HYDROCHLORIDE
     Dosage: 2000 MILLIGRAM DAILY;  THERAPY START DATE :ASKU,THERAPY END DATE :ASKU
     Route: 048
  2. NARATRIPTAN / Brand name not specified [Concomitant]
     Dosage: 5 MILLIGRAM DAILY;  FOR MIGRAINE,THERAPY START DATE :ASKU,THERAPY END DATE :ASKU
  3. SIMVASTATINE - Non-Current drug / Brand name not specified [Concomitant]
     Dosage: 40 MILLIGRAM DAILY; EVERY NIGHT.,THERAPY START DATE :ASKU,THERAPY END DATE :ASKU
     Route: 048
  4. LISINOPRIL/ Brand name not specified [Concomitant]
     Dosage: 1 DOSAGE FORMS DAILY;  90 TABLET 4 ,THERAPY START DATE :ASKU,THERAPY END DATE :ASKU
     Route: 048
  5. SPIRONOLACTONE [Concomitant]
     Active Substance: SPIRONOLACTONE
     Dosage: 1 DOSAGE FORMS DAILY;  90 TABLET 3 ,THERAPY START DATE :ASKU,THERAPY END DATE :ASKU
  6. RIVAROXABAN/ XARELTO [Concomitant]
     Dosage: 1 DOSAGE FORMS DAILY; ,THERAPY START DATE :ASKU,THERAPY END DATE :ASKU
  7. ZOPICLON / Brand name not specified [Concomitant]
     Dosage: 7.5 MILLIGRAM DAILY; THERAPY START DATE :ASKU,THERAPY END DATE :ASKU
     Route: 048
  8. TEMAZEPAM / Brand name not specified [Concomitant]
     Dosage: THERAPY START DATE :ASKU,THERAPY END DATE :ASKU
  9. CLOPIDOGREL / Brand name not specified [Concomitant]
     Dosage: THERAPY START DATE :ASKU,THERAPY END DATE :ASKU
  10. TAMSULOSINE/ Brand name not specified [Concomitant]
     Dosage: .4 MILLIGRAM DAILY; ,THERAPY START DATE :ASKU,THERAPY END DATE :ASKU
     Route: 048
  11. CARVEDILOL / EUCARDIC  Non-Current drug [Concomitant]
     Dosage: 50 MILLIGRAM DAILY;  WITH MEALS FOR 360 DAYS.180 TABLET 3,THERAPY START DATE :ASKU,THERAPY END DATE
     Route: 048
  12. FOLIUMZUUR / Brand name not specified [Concomitant]
     Dosage: .5 MILLIGRAM DAILY; THERAPY START DATE :ASKU,THERAPY END DATE :ASKU
     Route: 048
  13. THIAMINE / Brand name not specified [Concomitant]
     Dosage: 1 DOSAGE FORMS DAILY;  30 TABLET 0 ,THERAPY START DATE :ASKU,THERAPY END DATE :ASKU
     Route: 048
  14. FUROSEMIDE / Brand name not specified [Concomitant]
     Dosage: 1 DOSAGE FORMS DAILY;  90 TABLET 3 ,THERAPY START DATE :ASKU,THERAPY END DATE :ASKU
     Route: 048
  15. VENLAFAXINE / Brand name not specified [Concomitant]
     Dosage: 300 MILLIGRAM DAILY; THERAPY START DATE :ASKU,THERAPY END DATE :ASKU
     Route: 048
  16. DAPAGLIFLOZINE/ Brand name not specified [Concomitant]
     Dosage: 1 DOSAGE FORMS DAILY;  THERAPY START DATE :ASKU,THERAPY END DATE :ASKU
     Route: 048
  17. MACROGOL/ZOUTEN (MOVIC/MOLAX/LAXT/GEN) / MOVICOLON [Concomitant]
     Dosage: TAKE 1 SACHET BY MOUTH IF NECESSARY ONCE A DAY.   ,POWDER FOR BEVERAGE IN SACHET, THERAPY START DATE
  18. OLANZAPINE [Concomitant]
     Active Substance: OLANZAPINE
     Dosage: 5 MILLIGRAM DAILY; THERAPY START DATE :ASKU,THERAPY END DATE :ASKU
     Route: 048
  19. DIAZEPAM / Brand name not specified [Concomitant]
     Dosage: 3 DOSAGE FORMS DAILY;  30 TABLETS 0,THERAPY START DATE :ASKU,THERAPY END DATE :ASKU
     Route: 048

REACTIONS (4)
  - Hyperkalaemia [Fatal]
  - Cardiac asthma [Fatal]
  - Cardiac arrest [Fatal]
  - Malaise [Fatal]

NARRATIVE: CASE EVENT DATE: 20210418
